FAERS Safety Report 5971294-6 (Version None)
Quarter: 2008Q4

REPORT INFORMATION
  Report Type: 
  Country: None (occurrence: None)
  Receive Date: 20081128
  Receipt Date: 20081117
  Transmission Date: 20090506
  Serious: Yes (Other)
  Sender: FDA-Public Use
  Company Number: CN-PFIZER INC-2008098434

PATIENT
  Age: 63 Year
  Sex: Male

DRUGS (1)
  1. CEFOPERAZONE/SULBACTAM [Suspect]
     Indication: STENOTROPHOMONAS INFECTION
     Route: 042
     Dates: start: 20070817, end: 20070822

REACTIONS (3)
  - GASTROINTESTINAL HAEMORRHAGE [None]
  - HAEMOPTYSIS [None]
  - PLATELET COUNT DECREASED [None]
